FAERS Safety Report 5506462-0 (Version None)
Quarter: 2007Q4

REPORT INFORMATION
  Report Type: 
  Country: None (occurrence: None)
  Receive Date: 20071101
  Receipt Date: 20071015
  Transmission Date: 20080405
  Serious: Yes (Hospitalization)
  Sender: FDA-Public Use
  Company Number: DSJ-2007-06169

PATIENT
  Age: 71 Year
  Sex: Female
  Weight: 55 kg

DRUGS (8)
  1. OLMESARTAN MEDOXOMIL [Suspect]
     Indication: ESSENTIAL HYPERTENSION
     Dosage: 10 MG (10 MG, 1 IN 1 D), PER ORAL
     Route: 048
     Dates: start: 20050823, end: 20070418
  2. CALBLOCK (AZELNIDIPINE) (AZELNIDIPINE) [Concomitant]
  3. MICARDIS [Concomitant]
  4. BEZATOL SR (BEZAFIBRATE) (BEZAFIBRATE) [Concomitant]
  5. HUMACART 3/7 (INSULIN HUMAN) (INSULIN HUMAN) [Concomitant]
  6. LASIX [Concomitant]
  7. CALFINA (ALFACALCIDOL) (ALFACALCIDOL) [Concomitant]
  8. GOSHAJINKIGAN (HERBAL EXTRACT NOS) (HERBAL EXTRACT NOS) [Concomitant]

REACTIONS (3)
  - ANGINA PECTORIS [None]
  - PYELONEPHRITIS [None]
  - PYREXIA [None]
